FAERS Safety Report 25680128 (Version 2)
Quarter: 2025Q3

REPORT INFORMATION
  Report Type: Spontaneous
  Country: IN (occurrence: IN)
  Receive Date: 20250814
  Receipt Date: 20250903
  Transmission Date: 20251021
  Serious: Yes (Other)
  Sender: ALKEM
  Company Number: None

PATIENT
  Age: 35 Year
  Sex: Male

DRUGS (10)
  1. GABAPENTIN [Suspect]
     Active Substance: GABAPENTIN
     Indication: Insomnia
     Route: 065
  2. GABAPENTIN [Suspect]
     Active Substance: GABAPENTIN
     Indication: Anxiety
     Route: 065
  3. GABAPENTIN [Suspect]
     Active Substance: GABAPENTIN
     Dosage: 12000 MILLIGRAM, QD (120 CAPSULES)
     Route: 065
  4. GABAPENTIN [Suspect]
     Active Substance: GABAPENTIN
     Route: 065
  5. QUETIAPINE FUMARATE [Suspect]
     Active Substance: QUETIAPINE FUMARATE
     Indication: Major depression
     Route: 065
  6. QUETIAPINE FUMARATE [Suspect]
     Active Substance: QUETIAPINE FUMARATE
     Indication: Anxiety
     Route: 065
  7. ESCITALOPRAM [Suspect]
     Active Substance: ESCITALOPRAM OXALATE
     Indication: Major depression
     Dosage: 10 MILLIGRAM, BID
     Route: 065
  8. ESCITALOPRAM [Suspect]
     Active Substance: ESCITALOPRAM OXALATE
     Indication: Anxiety
     Route: 065
  9. LORAZEPAM [Suspect]
     Active Substance: LORAZEPAM
     Indication: Major depression
     Dosage: 1 MILLIGRAM, BID
     Route: 065
  10. LORAZEPAM [Suspect]
     Active Substance: LORAZEPAM
     Indication: Anxiety
     Route: 065

REACTIONS (8)
  - Iron deficiency [Unknown]
  - Vitamin D deficiency [Unknown]
  - Vitamin B12 deficiency [Unknown]
  - Weight increased [Unknown]
  - Drug dependence [Unknown]
  - Intentional overdose [Unknown]
  - Intentional product misuse [Unknown]
  - Therapy partial responder [Unknown]
